FAERS Safety Report 18185715 (Version 1)
Quarter: 2020Q3

REPORT INFORMATION
  Report Type: Report from Study
  Country: US (occurrence: US)
  Receive Date: 20200824
  Receipt Date: 20200824
  Transmission Date: 20201103
  Serious: Yes (Hospitalization, Other)
  Sender: FDA-Public Use
  Company Number: US-GILEAD-2020-0491278

PATIENT
  Age: 37 Year
  Sex: Male

DRUGS (2)
  1. SOFOSBUVIR W/VELPATASVIR [Suspect]
     Active Substance: SOFOSBUVIR\VELPATASVIR
     Indication: HEPATITIS C
     Dosage: 1 DOSAGE FORM, QD
     Route: 048
  2. SUBOXONE [Concomitant]
     Active Substance: BUPRENORPHINE HYDROCHLORIDE\NALOXONE HYDROCHLORIDE
     Dosage: 6MG (MOTHER WAS UNSURE)

REACTIONS (6)
  - Sedation [Not Recovered/Not Resolved]
  - Abdominal pain [Unknown]
  - Hyperhidrosis [Unknown]
  - Confusional state [Unknown]
  - Psychotic disorder [Unknown]
  - Tremor [Unknown]

NARRATIVE: CASE EVENT DATE: 20200818
